FAERS Safety Report 9539309 (Version 1)
Quarter: 2013Q3

REPORT INFORMATION
  Report Type: Spontaneous
  Country: JP (occurrence: None)
  Receive Date: 20130917
  Receipt Date: 20130917
  Transmission Date: 20140515
  Serious: Yes (Death, Hospitalization)
  Sender: FDA-Public Use
  Company Number: 2013P1019139

PATIENT
  Age: 95 Year
  Sex: Male

DRUGS (3)
  1. METHYLPREDNISOLONE [Suspect]
     Indication: ACUTE LUNG INJURY
  2. PREDNISOLONE [Suspect]
     Indication: ACUTE LUNG INJURY
  3. CEFTRIAXONE [Concomitant]

REACTIONS (6)
  - Drug ineffective [None]
  - Respiratory failure [None]
  - Pyrexia [None]
  - Pleural effusion [None]
  - Aspergillus infection [None]
  - Chlamydia test positive [None]
